FAERS Safety Report 19076354 (Version 1)
Quarter: 2021Q1

REPORT INFORMATION
  Report Type: Spontaneous
  Country: AU (occurrence: AU)
  Receive Date: 20210331
  Receipt Date: 20210331
  Transmission Date: 20210420
  Serious: Yes (Other)
  Sender: FDA-Public Use
  Company Number: AU-TEVA-2021-AU-1895597

PATIENT
  Age: 62 Year
  Sex: Female

DRUGS (5)
  1. LIGNOCAINE [Concomitant]
     Active Substance: LIDOCAINE HYDROCHLORIDE
     Indication: DRUG THERAPY
     Route: 061
  2. FENTANYL. [Concomitant]
     Active Substance: FENTANYL
     Indication: DRUG THERAPY
     Route: 065
  3. PACLITAXEL. [Suspect]
     Active Substance: PACLITAXEL
     Indication: BREAST CANCER
     Dosage: RECEIVED 9 CYCLES
     Route: 065
  4. COPHENYLCAINE [Concomitant]
     Indication: DRUG THERAPY
     Route: 061
  5. MIDAZOLAM. [Suspect]
     Active Substance: MIDAZOLAM
     Indication: SEDATIVE THERAPY
     Route: 042

REACTIONS (3)
  - Hypersensitivity pneumonitis [Recovering/Resolving]
  - Joint dislocation [Recovering/Resolving]
  - Drug ineffective [Unknown]
